FAERS Safety Report 9728405 (Version 2)
Quarter: 2013Q4

REPORT INFORMATION
  Report Type: Spontaneous
  Country: US (occurrence: US)
  Receive Date: 20131204
  Receipt Date: 20131224
  Transmission Date: 20140711
  Serious: Yes (Death)
  Sender: FDA-Public Use
  Company Number: US-ASTELLAS-2013US012527

PATIENT
  Sex: Male
  Weight: 81 kg

DRUGS (2)
  1. XTANDI [Suspect]
     Indication: PROSTATE CANCER
     Dosage: 160 MG, UID/QD
     Route: 048
     Dates: start: 20130508, end: 20130717
  2. ZOLADEX                            /00732101/ [Concomitant]
     Indication: PRODUCT USED FOR UNKNOWN INDICATION
     Dosage: 10.8 MG, Q3 MONTHS
     Route: 058

REACTIONS (1)
  - Malignant neoplasm progression [Fatal]
